FAERS Safety Report 11247929 (Version 1)
Quarter: 2015Q2

REPORT INFORMATION
  Report Type: Report from Study
  Country: US (occurrence: None)
  Receive Date: 20150617
  Receipt Date: 20150617
  Transmission Date: 20150821
  Serious: No
  Sender: FDA-Public Use
  Company Number: 2014TASUS000488

PATIENT
  Age: 48 Year
  Sex: Female
  Weight: 52.2 kg

DRUGS (3)
  1. SOMA (CARLSOPRODOL) [Concomitant]
  2. HETLIOZ [Suspect]
     Active Substance: TASIMELTEON
     Indication: CIRCADIAN RHYTHM SLEEP DISORDER
     Dosage: UNK, QHS, ORAL
     Route: 048
     Dates: start: 20140815
  3. PERCOCET (OXYCODONE HYDROCHLORIDE, PARACETAMOL) [Concomitant]

REACTIONS (3)
  - Nausea [None]
  - Feeling abnormal [None]
  - Drug dose omission [None]

NARRATIVE: CASE EVENT DATE: 20140815
